FAERS Safety Report 11604409 (Version 1)
Quarter: 2015Q4

REPORT INFORMATION
  Report Type: Spontaneous
  Country: VE (occurrence: VE)
  Receive Date: 20151007
  Receipt Date: 20151007
  Transmission Date: 20160304
  Serious: Yes (Hospitalization)
  Sender: FDA-Public Use
  Company Number: PHHY2015VE120655

PATIENT
  Sex: Male

DRUGS (3)
  1. STALEVO [Suspect]
     Active Substance: CARBIDOPA\ENTACAPONE\LEVODOPA
     Indication: PARKINSON^S DISEASE
     Dosage: 900 MG, QD (CONCENTRATION WAS 150 MG AND 50 MG)
     Route: 048
     Dates: end: 20150930
  2. MIRAPEX [Concomitant]
     Active Substance: PRAMIPEXOLE DIHYDROCHLORIDE
     Indication: PARKINSON^S DISEASE
     Dosage: 3 MG, UNK
     Route: 065
     Dates: start: 2012
  3. NEUPRO [Concomitant]
     Active Substance: ROTIGOTINE
     Indication: PARKINSON^S DISEASE
     Dosage: 6 MG TO 8 MG
     Route: 065

REACTIONS (3)
  - Poisoning [Unknown]
  - Tremor [Unknown]
  - Depression [Unknown]

NARRATIVE: CASE EVENT DATE: 2015
